FAERS Safety Report 17706497 (Version 2)
Quarter: 2020Q2

REPORT INFORMATION
  Report Type: Spontaneous
  Country: JP (occurrence: JP)
  Receive Date: 20200424
  Receipt Date: 20200430
  Transmission Date: 20200714
  Serious: Yes (Other)
  Sender: FDA-Public Use
  Company Number: JP-009507513-2004JPN006883

PATIENT
  Age: 79 Year
  Sex: Male
  Weight: 64.6 kg

DRUGS (2)
  1. GLACTIV [Suspect]
     Active Substance: SITAGLIPTIN
     Indication: TYPE 2 DIABETES MELLITUS
     Dosage: 50 MG EVERY DAY
     Route: 048
  2. GLACTIV [Suspect]
     Active Substance: SITAGLIPTIN
     Dosage: 50 MG, EVERYDAY
     Route: 048

REACTIONS (1)
  - Interstitial lung disease [Unknown]
